FAERS Safety Report 8790489 (Version 3)
Quarter: 2012Q4

REPORT INFORMATION
  Report Type: Spontaneous
  Country: JP (occurrence: None)
  Receive Date: 20120905
  Receipt Date: 20121024
  Transmission Date: 20130627
  Serious: Yes (Hospitalization, Other)
  Sender: FDA-Public Use
  Company Number: NSR_00651_2012

PATIENT
  Age: 13 Year
  Sex: Male

DRUGS (8)
  1. LAMOTRIGINE (LAMOTRIGINE) [Suspect]
     Indication: PRODUCT USED FOR UNKNOWN INDICATION
     Dosage: (frequency unknown)
  2. LAMOTRIGINE (LAMOTRIGINE) [Suspect]
     Indication: PRODUCT USED FOR UNKNOWN INDICATION
     Dosage: (frequency unknown)
     Route: 048
  3. LAMOTRIGINE (LAMOTRIGINE) [Suspect]
     Indication: PRODUCT USED FOR UNKNOWN INDICATION
     Dosage: (frequency unknown)
  4. LAMOTRIGINE (LAMOTRIGINE) [Suspect]
     Indication: PRODUCT USED FOR UNKNOWN INDICATION
     Dosage: (frequency unknown)
  5. LAMOTRIGINE (LAMOTRIGINE) [Suspect]
     Indication: PRODUCT USED FOR UNKNOWN INDICATION
     Dosage: (frequency unknown)
  6. VALPROATE SODIUM (VALPROATE SODIUM) [Suspect]
     Indication: EPILEPSY
     Dosage: (frequency unknown)
  7. VALPROATE SODIUM (VALPROATE SODIUM) [Suspect]
     Indication: EPILEPSY
     Dosage: (frequency unknown)
  8. VALPROATE SODIUM (VALPROATE SODIUM) [Suspect]
     Indication: EPILEPSY
     Dosage: (frequency unknown)

REACTIONS (1)
  - Inappropriate antidiuretic hormone secretion [None]
